FAERS Safety Report 10077834 (Version 2)
Quarter: 2014Q2

REPORT INFORMATION
  Report Type: Report from Study
  Country: DE (occurrence: DE)
  Receive Date: 20140414
  Receipt Date: 20140522
  Transmission Date: 20141212
  Serious: Yes (Hospitalization)
  Sender: FDA-Public Use
  Company Number: PHHY2014DE043917

PATIENT
  Sex: 0

DRUGS (6)
  1. EVEROLIMUS [Suspect]
     Indication: BREAST CANCER METASTATIC
     Dosage: 5 MG, QOD
     Dates: start: 20130419, end: 20140313
  2. VINORELBINE [Suspect]
     Indication: BREAST CANCER METASTATIC
     Dosage: 19 MG/M2, QW
     Dates: start: 20130417, end: 20140313
  3. RAMPRIL [Concomitant]
  4. PANTOPRAZOL [Concomitant]
  5. VENLAFAXIN [Concomitant]
  6. FLUVASTATIN [Concomitant]

REACTIONS (1)
  - Pneumonitis [Recovered/Resolved with Sequelae]
